FAERS Safety Report 17199408 (Version 1)
Quarter: 2019Q4

REPORT INFORMATION
  Report Type: Spontaneous
  Country: CA (occurrence: CA)
  Receive Date: 20191226
  Receipt Date: 20191226
  Transmission Date: 20200122
  Serious: Yes (Other)
  Sender: FDA-Public Use
  Company Number: CA-ABBVIE-19K-028-3205521-00

PATIENT
  Age: 46 Year
  Sex: Female
  Weight: 88.08 kg

DRUGS (3)
  1. HUMIRA [Suspect]
     Active Substance: ADALIMUMAB
     Indication: PRODUCT USED FOR UNKNOWN INDICATION
     Route: 058
  2. VITAMIN B [Concomitant]
     Active Substance: VITAMIN B
     Indication: IRON DEFICIENCY
     Route: 030
  3. REMICADE [Suspect]
     Active Substance: INFLIXIMAB
     Indication: CROHN^S DISEASE
     Route: 042

REACTIONS (3)
  - Lupus-like syndrome [Not Recovered/Not Resolved]
  - Drug level increased [Not Recovered/Not Resolved]
  - Crohn^s disease [Not Recovered/Not Resolved]
